FAERS Safety Report 4724761-7 (Version None)
Quarter: 2005Q3

REPORT INFORMATION
  Report Type: 
  Country: None (occurrence: None)
  Receive Date: 20050726
  Receipt Date: 20050519
  Transmission Date: 20060218
  Serious: Yes (Disabling)
  Sender: FDA-Public Use
  Company Number: JP-GLAXOSMITHKLINE-B0381903A

PATIENT
  Age: 19 Year
  Sex: Male
  Weight: 55 kg

DRUGS (39)
  1. ALKERAN [Suspect]
     Indication: BONE MARROW CONDITIONING REGIMEN
     Route: 042
     Dates: start: 20040314, end: 20040316
  2. GRAN [Concomitant]
     Dates: start: 20040325, end: 20040331
  3. GRAN [Concomitant]
     Dates: start: 20040401, end: 20040403
  4. GRAN [Concomitant]
     Dates: start: 20040404, end: 20040409
  5. CYCLOSPORINE [Concomitant]
     Indication: IMMUNOSUPPRESSION
     Route: 065
     Dates: start: 20040317
  6. METHOTREXATE [Concomitant]
     Indication: IMMUNOSUPPRESSION
     Route: 065
     Dates: start: 20040319, end: 20040323
  7. VITAJECT [Concomitant]
     Dates: start: 20040314, end: 20040416
  8. HEPARIN SODIUM [Concomitant]
     Dates: start: 20040314, end: 20040328
  9. KYTRIL [Concomitant]
     Dates: start: 20040314, end: 20040317
  10. GAMIMUNE N 5% [Concomitant]
     Dates: start: 20040317, end: 20040421
  11. FIRSTCIN [Concomitant]
     Dates: start: 20040319, end: 20040324
  12. ZOVIRAX [Concomitant]
     Dates: start: 20040322, end: 20040414
  13. AMPICILLIN [Concomitant]
     Dates: start: 20040322, end: 20040407
  14. OMEPRAZOLE [Concomitant]
     Dates: start: 20040322, end: 20040404
  15. LEPETAN [Concomitant]
     Dates: start: 20040323, end: 20040402
  16. SAXIZON [Concomitant]
     Dates: start: 20040325, end: 20040331
  17. TIENAM [Concomitant]
     Dates: start: 20040323, end: 20040404
  18. MEROPEN [Concomitant]
     Dates: start: 20040405, end: 20040407
  19. NEOMINOPHAGEN [Concomitant]
     Dates: start: 20040415, end: 20040427
  20. ADENOSINE [Concomitant]
     Dates: start: 20040427, end: 20040507
  21. ZOVIRAX [Concomitant]
     Route: 048
     Dates: start: 20040314, end: 20040321
  22. ZOVIRAX [Concomitant]
     Route: 048
     Dates: start: 20040415, end: 20040510
  23. ZOVIRAX [Concomitant]
     Route: 048
     Dates: start: 20040511, end: 20040530
  24. ZOVIRAX [Concomitant]
     Route: 048
     Dates: start: 20040531
  25. DIFLUCAN [Concomitant]
     Route: 048
     Dates: start: 20040314, end: 20040320
  26. DIFLUCAN [Concomitant]
     Route: 048
     Dates: start: 20040408
  27. BAKTAR [Concomitant]
     Route: 048
     Dates: start: 20040314
  28. OMEPRAZOLE [Concomitant]
     Route: 048
     Dates: start: 20040314, end: 20040320
  29. OMEPRAZOLE [Concomitant]
     Route: 048
     Dates: start: 20040404
  30. CIPROXAN [Concomitant]
     Route: 048
     Dates: start: 20040314, end: 20040321
  31. CIPROXAN [Concomitant]
     Route: 048
     Dates: start: 20040408, end: 20040430
  32. RULID [Concomitant]
     Route: 048
     Dates: start: 20040511, end: 20040520
  33. PREDONINE [Concomitant]
     Route: 048
     Dates: start: 20040515, end: 20040515
  34. PREDONINE [Concomitant]
     Route: 048
     Dates: start: 20040516, end: 20040519
  35. PREDONINE [Concomitant]
     Route: 048
     Dates: start: 20040520, end: 20040524
  36. PREDONINE [Concomitant]
     Route: 048
     Dates: start: 20040525, end: 20040530
  37. PREDONINE [Concomitant]
     Route: 048
     Dates: start: 20040531, end: 20040613
  38. PREDONINE [Concomitant]
     Route: 048
     Dates: start: 20040614
  39. POLARAMINE [Concomitant]
     Route: 048
     Dates: start: 20040525

REACTIONS (5)
  - ALANINE AMINOTRANSFERASE INCREASED [None]
  - ASPARTATE AMINOTRANSFERASE INCREASED [None]
  - C-REACTIVE PROTEIN INCREASED [None]
  - INFECTION [None]
  - TRANSPLANT REJECTION [None]
